FAERS Safety Report 4821304-4 (Version None)
Quarter: 2005Q4

REPORT INFORMATION
  Report Type: 
  Country: None (occurrence: None)
  Receive Date: 20051107
  Receipt Date: 20050720
  Transmission Date: 20060501
  Serious: No
  Sender: FDA-Public Use
  Company Number: US-GLAXOSMITHKLINE-A0567057A

PATIENT
  Sex: Male

DRUGS (6)
  1. AVANDAMET [Suspect]
     Route: 048
  2. VYTORIN [Concomitant]
  3. UNKNOWN MEDICATION [Concomitant]
  4. ASACOL [Concomitant]
  5. LUPRON [Concomitant]
  6. HYDROCHLOROTHIAZIDE [Concomitant]

REACTIONS (1)
  - OEDEMA PERIPHERAL [None]
